FAERS Safety Report 19910477 (Version 2)
Quarter: 2022Q2

REPORT INFORMATION
  Report Type: Report from Study
  Country: US (occurrence: US)
  Receive Date: 20211004
  Receipt Date: 20220412
  Transmission Date: 20220720
  Serious: Yes (Other)
  Sender: FDA-Public Use
  Company Number: US-SUN PHARMACEUTICAL INDUSTRIES LTD-2021R1-312674

PATIENT
  Age: 34 Year
  Sex: Male

DRUGS (1)
  1. CLINDAMYCIN [Suspect]
     Active Substance: CLINDAMYCIN
     Indication: Preoperative care
     Dosage: UNK
     Route: 065

REACTIONS (3)
  - Type I hypersensitivity [Unknown]
  - Erythema [Not Recovered/Not Resolved]
  - Rash [Unknown]
